FAERS Safety Report 25151962 (Version 1)
Quarter: 2025Q2

REPORT INFORMATION
  Report Type: Spontaneous
  Country: CN (occurrence: CN)
  Receive Date: 20250402
  Receipt Date: 20250402
  Transmission Date: 20250717
  Serious: Yes (Other)
  Sender: PFIZER
  Company Number: CN-PFIZER INC-PV202500037181

PATIENT
  Age: 43 Year
  Sex: Male

DRUGS (13)
  1. XYNTHA [Suspect]
     Active Substance: MOROCTOCOG ALFA
     Route: 042
     Dates: start: 20250216
  2. XYNTHA [Suspect]
     Active Substance: MOROCTOCOG ALFA
     Route: 042
     Dates: start: 20250217
  3. XYNTHA [Suspect]
     Active Substance: MOROCTOCOG ALFA
     Route: 042
     Dates: start: 20250218
  4. XYNTHA [Suspect]
     Active Substance: MOROCTOCOG ALFA
     Route: 042
     Dates: start: 20250219
  5. XYNTHA [Suspect]
     Active Substance: MOROCTOCOG ALFA
     Route: 042
     Dates: start: 20250219
  6. XYNTHA [Suspect]
     Active Substance: MOROCTOCOG ALFA
     Dosage: 1500 IU, Q12H
     Route: 042
     Dates: start: 20250219
  7. XYNTHA [Suspect]
     Active Substance: MOROCTOCOG ALFA
     Dosage: 1500 IU, QN
     Route: 042
     Dates: start: 20250220
  8. XYNTHA [Suspect]
     Active Substance: MOROCTOCOG ALFA
     Dosage: 2000 IU, QD
     Route: 042
     Dates: start: 20250220
  9. XYNTHA [Suspect]
     Active Substance: MOROCTOCOG ALFA
     Dosage: 1500 IU, QD
     Route: 042
     Dates: start: 20250228
  10. XYNTHA [Suspect]
     Active Substance: MOROCTOCOG ALFA
     Dosage: 1000 IU, QD
     Route: 042
     Dates: start: 20250304
  11. XYNTHA [Suspect]
     Active Substance: MOROCTOCOG ALFA
     Dosage: 1000 IU, QN
     Route: 042
     Dates: start: 20250304
  12. XYNTHA [Suspect]
     Active Substance: MOROCTOCOG ALFA
     Dosage: 500 IU, QN
     Route: 042
     Dates: start: 20250313
  13. XYNTHA [Suspect]
     Active Substance: MOROCTOCOG ALFA
     Dosage: 500 IU, QD
     Route: 042
     Dates: start: 20250313

REACTIONS (9)
  - Pathological fracture [Unknown]
  - Neutropenia [Unknown]
  - Haematoma [Unknown]
  - Haemorrhage [Unknown]
  - Hypoproteinaemia [Unknown]
  - Soft tissue infection [Unknown]
  - Anaemia [Unknown]
  - Electrolyte imbalance [Unknown]
  - Skin ulcer [Unknown]
